FAERS Safety Report 22060862 (Version 1)
Quarter: 2023Q1

REPORT INFORMATION
  Report Type: Spontaneous
  Country: JP (occurrence: JP)
  Receive Date: 20230303
  Receipt Date: 20230303
  Transmission Date: 20230417
  Serious: Yes (Other)
  Sender: FDA-Public Use
  Company Number: JP-Eisai-202214817_LEN-EC_P_1

PATIENT
  Age: 61 Year
  Sex: Female

DRUGS (3)
  1. LENVIMA [Suspect]
     Active Substance: LENVATINIB
     Indication: Endometrial cancer
     Route: 048
     Dates: start: 202301, end: 202302
  2. LENVIMA [Suspect]
     Active Substance: LENVATINIB
     Route: 048
     Dates: start: 20230214
  3. KEYTRUDA [Suspect]
     Active Substance: PEMBROLIZUMAB
     Indication: Endometrial cancer
     Route: 041
     Dates: start: 202301

REACTIONS (8)
  - Septic shock [Unknown]
  - Fatigue [Recovered/Resolved]
  - Malaise [Recovered/Resolved]
  - Blood pressure decreased [Recovered/Resolved]
  - Vomiting [Recovered/Resolved]
  - White blood cell count increased [Unknown]
  - C-reactive protein increased [Unknown]
  - Headache [Unknown]

NARRATIVE: CASE EVENT DATE: 20230101
